FAERS Safety Report 4984926-6 (Version None)
Quarter: 2006Q2

REPORT INFORMATION
  Report Type: 
  Country: None (occurrence: None)
  Receive Date: 20060426
  Receipt Date: 20060426
  Transmission Date: 20061013
  Serious: Yes (Life-Threatening, Hospitalization)
  Sender: FDA-Public Use
  Company Number: None

PATIENT
  Age: 77 Year
  Sex: Female
  Weight: 50 kg

DRUGS (19)
  1. RITUXIMAB   500MG/  50ML  GENETECH [Suspect]
     Indication: VASCULITIS
     Dosage: 600MG ONCE IV
     Route: 042
     Dates: start: 20050208, end: 20050208
  2. FLUCONAZOLE 200MG/100ML [Suspect]
     Indication: CANDIDURIA
     Dosage: 100MG DAILY IV
     Route: 042
  3. CITALOPRAM [Concomitant]
  4. ZOLPIDEM TARTRATE [Concomitant]
  5. RIFAMPIN [Concomitant]
  6. LAMUVIDINE [Concomitant]
  7. AMLODIPINE [Concomitant]
  8. LACTULOSE [Concomitant]
  9. MAALOX FAST BLOCKER [Concomitant]
  10. HYDRALAZINE HCL [Concomitant]
  11. PANTOPRAZOLE [Concomitant]
  12. METOPROLOL SUCCINATE [Concomitant]
  13. PROMETHAZINE [Concomitant]
  14. METHYLPREDNISOLONE SODIUM SUCCINATE [Concomitant]
  15. NYSTATIN [Concomitant]
  16. CITRUCEL [Concomitant]
  17. VANCOMYCIN [Concomitant]
  18. ERYTHROPOEITIN [Concomitant]
  19. CYCLOPHOSPHAMIDE [Concomitant]

REACTIONS (8)
  - ARRHYTHMIA [None]
  - CARDIAC FAILURE [None]
  - DEVICE RELATED INFECTION [None]
  - INFUSION RELATED REACTION [None]
  - POST PROCEDURAL COMPLICATION [None]
  - PULMONARY OEDEMA [None]
  - TORSADE DE POINTES [None]
  - VASCULITIS [None]
